FAERS Safety Report 12827329 (Version 2)
Quarter: 2016Q4

REPORT INFORMATION
  Report Type: Spontaneous
  Country: FR (occurrence: FR)
  Receive Date: 20161007
  Receipt Date: 20161220
  Transmission Date: 20170207
  Serious: Yes (Death)
  Sender: FDA-Public Use
  Company Number: FR-BECTON DICKINSON-2016BDN00369

PATIENT

DRUGS (1)
  1. CHLORAPREP ONE-STEP FREPP [Suspect]
     Active Substance: CHLORHEXIDINE GLUCONATE\ISOPROPYL ALCOHOL
     Indication: INFECTION PROPHYLAXIS

REACTIONS (2)
  - Liquid product physical issue [Unknown]
  - Sepsis [Fatal]
